FAERS Safety Report 19424620 (Version 3)
Quarter: 2021Q2

REPORT INFORMATION
  Report Type: Spontaneous
  Country: JP (occurrence: JP)
  Receive Date: 20210617
  Receipt Date: 20210629
  Transmission Date: 20210717
  Serious: Yes (Hospitalization, Other)
  Sender: FDA-Public Use
  Company Number: JP-JNJFOC-20210627383

PATIENT
  Age: 75 Year
  Sex: Female
  Weight: 44 kg

DRUGS (6)
  1. STELARA [Suspect]
     Active Substance: USTEKINUMAB
     Dosage: USTEKINUMAB (GENETICAL RECOMBINATION):45MG
     Route: 058
     Dates: start: 20210210, end: 20210210
  2. IMURAN [Concomitant]
     Active Substance: AZATHIOPRINE
     Route: 065
     Dates: start: 20201009, end: 20210611
  3. STELARA [Suspect]
     Active Substance: USTEKINUMAB
     Dosage: USTEKINUMAB (GENETICAL RECOMBINATION):45MG
     Route: 058
     Dates: start: 20210428, end: 20210428
  4. RECTABUL [Concomitant]
     Active Substance: BUDESONIDE
     Route: 065
     Dates: start: 20201006, end: 20210428
  5. RECTABUL [Concomitant]
     Active Substance: BUDESONIDE
     Route: 065
     Dates: start: 20210428, end: 20210609
  6. STELARA [Suspect]
     Active Substance: USTEKINUMAB
     Indication: COLITIS ULCERATIVE
     Dosage: USTEKINUMAB (GENETICAL RECOMBINATION):130MG
     Route: 041
     Dates: start: 20201217, end: 20201217

REACTIONS (2)
  - Infective spondylitis [Not Recovered/Not Resolved]
  - Spinal stenosis [Unknown]

NARRATIVE: CASE EVENT DATE: 202104
